FAERS Safety Report 17261835 (Version 4)
Quarter: 2020Q1

REPORT INFORMATION
  Report Type: Spontaneous
  Country: US (occurrence: US)
  Receive Date: 20200113
  Receipt Date: 20200221
  Transmission Date: 20200409
  Serious: Yes (Other)
  Sender: FDA-Public Use
  Company Number: US-JNJFOC-20200107688

PATIENT
  Age: 29 Year
  Sex: Male
  Weight: 78.54 kg

DRUGS (1)
  1. RISPERDAL CONSTA [Suspect]
     Active Substance: RISPERIDONE
     Indication: SCHIZOPHRENIA
     Route: 030
     Dates: start: 201510

REACTIONS (5)
  - Drug delivery system malfunction [Unknown]
  - Product complaint [Unknown]
  - Product dose omission [Unknown]
  - Product container issue [Unknown]
  - Schizophrenia [Unknown]

NARRATIVE: CASE EVENT DATE: 20200103
